FAERS Safety Report 9404650 (Version 2)
Quarter: 2013Q3

REPORT INFORMATION
  Report Type: Spontaneous
  Country: GB (occurrence: GB)
  Receive Date: 20130717
  Receipt Date: 20130830
  Transmission Date: 20140515
  Serious: Yes (Hospitalization, Disabling, Other)
  Sender: FDA-Public Use
  Company Number: PHFR2013GB004016

PATIENT
  Age: 60 Year
  Sex: Female

DRUGS (15)
  1. LETROZOLE [Suspect]
     Indication: BREAST CANCER METASTATIC
     Dosage: 2.5 MG
     Route: 048
     Dates: start: 20121129, end: 201305
  2. METFORMIN [Concomitant]
     Dosage: UNK UKN, UNK
  3. GLICLAZIDE [Concomitant]
  4. ZOPICLONE [Concomitant]
     Dosage: UNK UKN, UNK
  5. CITALOPRAM [Concomitant]
     Dosage: UNK UKN, UNK
  6. OMEPRAZOLE [Concomitant]
     Dosage: UNK UKN, UNK
  7. LISINOPRIL [Concomitant]
     Dosage: UNK UKN, UNK
  8. CYCLIZINE [Concomitant]
     Dosage: UNK UKN, UNK
  9. FERROUS FUMARATE [Concomitant]
     Dosage: UNK UKN, UNK
  10. CO-DANTHRAMER [Concomitant]
     Dosage: UNK UKN, UNK
  11. TRAMADOL [Concomitant]
     Dosage: UNK UKN, UNK
  12. SEVREDOL [Concomitant]
     Dosage: UNK UKN, UNK
  13. BUMETANIDE [Concomitant]
     Dosage: UNK UKN, UNK
  14. LEVEMIR [Concomitant]
     Dosage: UNK UKN, UNK
  15. INSULIN DETEMIR [Concomitant]
     Dosage: UNK UKN, UNK

REACTIONS (2)
  - Psychotic disorder [Recovered/Resolved]
  - Mania [Recovered/Resolved]
